FAERS Safety Report 8308640-4 (Version None)
Quarter: 2012Q2

REPORT INFORMATION
  Report Type: 
  Country: None (occurrence: None)
  Receive Date: 20120424
  Receipt Date: 20100430
  Transmission Date: 20120825
  Serious: Yes (Other)
  Sender: FDA-Public Use
  Company Number: US-TEVA-2010002507

PATIENT
  Sex: Male

DRUGS (6)
  1. REBIF [Suspect]
     Route: 058
     Dates: start: 20100101, end: 20100101
  2. PROVIGIL [Suspect]
     Indication: FATIGUE
     Route: 048
     Dates: start: 20080101, end: 20100401
  3. REBIF [Suspect]
     Route: 058
     Dates: start: 20100401, end: 20100401
  4. REBIF [Suspect]
     Indication: MULTIPLE SCLEROSIS
     Route: 058
     Dates: start: 20100226, end: 20100301
  5. REBIF [Suspect]
     Route: 058
     Dates: start: 20100401
  6. WELLBUTRIN [Concomitant]
     Indication: DEPRESSION

REACTIONS (4)
  - DRUG INEFFECTIVE FOR UNAPPROVED INDICATION [None]
  - SUICIDAL IDEATION [None]
  - DEPRESSION [None]
  - SOMNOLENCE [None]
